FAERS Safety Report 25944381 (Version 3)
Quarter: 2025Q4

REPORT INFORMATION
  Report Type: Spontaneous
  Country: US (occurrence: US)
  Receive Date: 20251021
  Receipt Date: 20251127
  Transmission Date: 20260118
  Serious: Yes (Hospitalization)
  Sender: HIKMA
  Company Number: US-HIKMA PHARMACEUTICALS USA INC.-US-H14001-25-11135

PATIENT
  Age: 68 Year
  Sex: Male

DRUGS (1)
  1. TESTOSTERONE CYPIONATE [Suspect]
     Active Substance: TESTOSTERONE CYPIONATE
     Indication: Blood testosterone decreased
     Dosage: 0.5 MILLILITER, WEEKLY (100 MG)
     Route: 030
     Dates: start: 20250905

REACTIONS (6)
  - Pain [Recovering/Resolving]
  - Adverse drug reaction [Recovering/Resolving]
  - Injection site pain [Recovering/Resolving]
  - Myalgia [Recovering/Resolving]
  - Injection site swelling [Recovering/Resolving]
  - Abscess [Recovered/Resolved]

NARRATIVE: CASE EVENT DATE: 20250907
